FAERS Safety Report 12702720 (Version 2)
Quarter: 2016Q3

REPORT INFORMATION
  Report Type: Spontaneous
  Country: IT (occurrence: IT)
  Receive Date: 20160831
  Receipt Date: 20160913
  Transmission Date: 20161109
  Serious: Yes (Other)
  Sender: FDA-Public Use
  Company Number: IT-PFIZER INC-2016405965

PATIENT
  Age: 24 Year
  Sex: Female

DRUGS (7)
  1. DEPAKIN [Suspect]
     Active Substance: VALPROATE SODIUM
     Indication: INTENTIONAL SELF-INJURY
  2. PROZIN /00011902/ [Suspect]
     Active Substance: CHLORPROMAZINE HYDROCHLORIDE
     Indication: INTENTIONAL SELF-INJURY
  3. LITHIUM. [Suspect]
     Active Substance: LITHIUM
     Indication: INTENTIONAL SELF-INJURY
  4. EN [Suspect]
     Active Substance: DELORAZEPAM
     Indication: INTENTIONAL SELF-INJURY
  5. CLOZAPINE. [Suspect]
     Active Substance: CLOZAPINE
     Indication: INTENTIONAL SELF-INJURY
  6. GABAPENTIN. [Suspect]
     Active Substance: GABAPENTIN
     Indication: INTENTIONAL SELF-INJURY
  7. RIVOTRIL [Suspect]
     Active Substance: CLONAZEPAM
     Indication: INTENTIONAL SELF-INJURY

REACTIONS (8)
  - Intentional self-injury [Recovering/Resolving]
  - Headache [Recovering/Resolving]
  - Contusion [Recovering/Resolving]
  - Drug ineffective for unapproved indication [Recovering/Resolving]
  - Head injury [Recovering/Resolving]
  - Drug abuse [Recovering/Resolving]
  - Vertigo [Recovering/Resolving]
  - Dizziness [Unknown]

NARRATIVE: CASE EVENT DATE: 20151102
